FAERS Safety Report 16277480 (Version 1)
Quarter: 2019Q2

REPORT INFORMATION
  Report Type: Spontaneous
  Country: CN (occurrence: CN)
  Receive Date: 20190506
  Receipt Date: 20190506
  Transmission Date: 20190711
  Serious: Yes (Hospitalization)
  Sender: FDA-Public Use
  Company Number: CN-BAYER-2019-085930

PATIENT
  Age: 59 Year
  Sex: Female
  Weight: 57 kg

DRUGS (3)
  1. STIVARGA [Suspect]
     Active Substance: REGORAFENIB
     Indication: CHEMOTHERAPY
     Dosage: 80 MG, BID
     Route: 048
     Dates: start: 20190404, end: 20190404
  2. STIVARGA [Suspect]
     Active Substance: REGORAFENIB
     Indication: COLON CANCER
  3. RALTITREXED [Suspect]
     Active Substance: RALTITREXED
     Indication: CHEMOTHERAPY
     Dosage: 4 MG, QD
     Route: 041
     Dates: start: 20190404, end: 20190404

REACTIONS (1)
  - Bone marrow failure [Recovering/Resolving]

NARRATIVE: CASE EVENT DATE: 20190414
